FAERS Safety Report 16887123 (Version 1)
Quarter: 2019Q4

REPORT INFORMATION
  Report Type: Spontaneous
  Country: US (occurrence: US)
  Receive Date: 20191004
  Receipt Date: 20191004
  Transmission Date: 20200122
  Serious: Yes (Other)
  Sender: FDA-Public Use
  Company Number: US-ARBOR PHARMACEUTICALS, LLC-US-2019ARB001402

PATIENT
  Age: 75 Year
  Sex: Male

DRUGS (2)
  1. ENTRESTO [Concomitant]
     Active Substance: SACUBITRIL\VALSARTAN
     Indication: CARDIAC FAILURE CONGESTIVE
     Dosage: UNK
  2. BIDIL [Suspect]
     Active Substance: HYDRALAZINE HYDROCHLORIDE\ISOSORBIDE DINITRATE
     Indication: CARDIAC FAILURE CONGESTIVE
     Dosage: 1 TABLET TAKEN 3 TIMES A DAY (1 WITH BREAKFAST, 1 WITH LUNCH, AND 1 WITH ENTRESTO BEFORE BEDTIME)
     Route: 048
     Dates: start: 201801

REACTIONS (5)
  - Dizziness [Unknown]
  - Product measured potency issue [Unknown]
  - Blood pressure systolic increased [Unknown]
  - Prostatic specific antigen increased [Unknown]
  - Product physical issue [Unknown]

NARRATIVE: CASE EVENT DATE: 2019
